FAERS Safety Report 8923678 (Version 1)
Quarter: 2012Q4

REPORT INFORMATION
  Report Type: Spontaneous
  Country: US (occurrence: None)
  Receive Date: 20121109
  Receipt Date: 20121109
  Transmission Date: 20130627
  Serious: Yes (Hospitalization)
  Sender: FDA-Public Use
  Company Number: 2011S1000896

PATIENT
  Sex: Female

DRUGS (9)
  1. CUBICIN [Suspect]
     Indication: CELLULITIS
     Dosage: 500  MG; QD; U
  2. ACTOS [Concomitant]
  3. SYNTHROID [Concomitant]
  4. LISINOPRIL [Concomitant]
  5. ALLEGRA [Concomitant]
  6. VYTORIN [Concomitant]
  7. ASPIRIN [Concomitant]
  8. MULTIVITAMINS [Concomitant]
  9. K-DUR [Concomitant]

REACTIONS (2)
  - Hypersensitivity [None]
  - Urticaria [None]
